FAERS Safety Report 16172060 (Version 5)
Quarter: 2025Q3

REPORT INFORMATION
  Report Type: Spontaneous
  Country: EU (occurrence: EU)
  Receive Date: 20190409
  Receipt Date: 20250918
  Transmission Date: 20251020
  Serious: Yes (Death, Hospitalization, Other)
  Sender: AUROBINDO
  Company Number: EU-AUROBINDO-AUR-APL-2019-018145

PATIENT
  Age: 66 Year
  Sex: Female

DRUGS (4)
  1. LANSOPRAZOLE [Suspect]
     Active Substance: LANSOPRAZOLE
     Indication: Product used for unknown indication
     Dosage: 20 MILLIGRAM, ONCE A DAY
     Route: 065
  2. FUROSEMIDE [Suspect]
     Active Substance: FUROSEMIDE
     Indication: Product used for unknown indication
     Dosage: 40 MILLIGRAM, ONCE A DAY
     Route: 065
  3. FOLIC ACID [Suspect]
     Active Substance: FOLIC ACID
     Indication: Product used for unknown indication
     Dosage: 5 MILLIGRAM, ONCE A DAY
     Route: 065
  4. LORAZEPAM [Suspect]
     Active Substance: LORAZEPAM
     Indication: Product used for unknown indication
     Dosage: 1.5 MILLIGRAM, ONCE A DAY
     Route: 065

REACTIONS (25)
  - Cardiac failure acute [Fatal]
  - Light chain disease [Fatal]
  - Gingival bleeding [Fatal]
  - Abnormal loss of weight [Fatal]
  - Pleural effusion [Fatal]
  - Pericardial effusion [Fatal]
  - Dyspnoea at rest [Fatal]
  - Systolic dysfunction [Fatal]
  - Asthenia [Fatal]
  - Hypogammaglobulinaemia [Fatal]
  - Palpitations [Fatal]
  - Normochromic normocytic anaemia [Fatal]
  - Conjunctival haemorrhage [Fatal]
  - Fatigue [Fatal]
  - Cardiogenic shock [Fatal]
  - Crepitations [Fatal]
  - Myocardial necrosis [Fatal]
  - Atrial fibrillation [Fatal]
  - Jugular vein distension [Fatal]
  - Coagulopathy [Fatal]
  - Oedema peripheral [Fatal]
  - Cardiac amyloidosis [Fatal]
  - Pallor [Fatal]
  - Ischaemia [Fatal]
  - Plasma cell myeloma [Fatal]
